FAERS Safety Report 5226624-X (Version None)
Quarter: 2007Q1

REPORT INFORMATION
  Report Type: 
  Country: None (occurrence: None)
  Receive Date: 20070201
  Receipt Date: 20070125
  Transmission Date: 20070707
  Serious: Yes (Other)
  Sender: FDA-Public Use
  Company Number: US-PFIZER INC-2007007067

PATIENT
  Sex: Female
  Weight: 56.7 kg

DRUGS (1)
  1. BEXTRA [Suspect]
     Indication: CARPAL TUNNEL SYNDROME
     Dates: start: 20020101, end: 20040101

REACTIONS (4)
  - ANXIETY [None]
  - CARPAL TUNNEL SYNDROME [None]
  - NEUROPATHY [None]
  - RASH [None]
